FAERS Safety Report 22184884 (Version 5)
Quarter: 2023Q4

REPORT INFORMATION
  Report Type: Spontaneous
  Country: DE (occurrence: DE)
  Receive Date: 20230407
  Receipt Date: 20231228
  Transmission Date: 20240110
  Serious: Yes (Other)
  Sender: FDA-Public Use
  Company Number: DE-ALKEM LABORATORIES LIMITED-DE-ALKEM-2023-03558

PATIENT
  Age: 48 Year
  Sex: Male
  Weight: 130 kg

DRUGS (3)
  1. PREGABALIN [Suspect]
     Active Substance: PREGABALIN
     Indication: Product used for unknown indication
     Dosage: UNK, QD (EVERY 1 DAY)
     Route: 065
  2. PREGABALIN [Suspect]
     Active Substance: PREGABALIN
     Dosage: 150 MILLIGRAM, QD (EVERY 1 DAY)
     Route: 065
  3. SPIKEVAX (ELASOMERAN) [Suspect]
     Active Substance: ELASOMERAN
     Indication: COVID-19 prophylaxis
     Dosage: 1 DOSAGE FORM
     Route: 065
     Dates: start: 20220108

REACTIONS (15)
  - Hepatic cirrhosis [Unknown]
  - Nerve root injury lumbar [Unknown]
  - Asthma [Unknown]
  - Carpal tunnel syndrome [Unknown]
  - Chronic obstructive pulmonary disease [Unknown]
  - COVID-19 immunisation [Unknown]
  - Emphysema [Unknown]
  - Interchange of vaccine products [Unknown]
  - Obstructive sleep apnoea syndrome [Unknown]
  - Skin papilloma [Unknown]
  - Spinal flattening [Unknown]
  - Viral acanthoma [Unknown]
  - Axonal and demyelinating polyneuropathy [Not Recovered/Not Resolved]
  - Visual impairment [Not Recovered/Not Resolved]
  - Dizziness [Unknown]

NARRATIVE: CASE EVENT DATE: 20220906
